FAERS Safety Report 20195476 (Version 1)
Quarter: 2021Q4

REPORT INFORMATION
  Report Type: Spontaneous
  Country: BR (occurrence: BR)
  Receive Date: 20211216
  Receipt Date: 20211216
  Transmission Date: 20220304
  Serious: Yes (Other)
  Sender: FDA-Public Use
  Company Number: BR-NOVARTISPH-NVSC2021BR285582

PATIENT
  Age: 68 Year
  Sex: Male

DRUGS (1)
  1. MAXIDEX [Suspect]
     Active Substance: DEXAMETHASONE
     Indication: Uveitis
     Dosage: 5 OR 6 ML
     Route: 065
     Dates: start: 2015, end: 20211209

REACTIONS (5)
  - Glaucoma [Recovered/Resolved]
  - Retinal detachment [Unknown]
  - Cataract [Unknown]
  - Uveitis [Unknown]
  - Blepharospasm [Unknown]

NARRATIVE: CASE EVENT DATE: 20210301
